FAERS Safety Report 23932139 (Version 1)
Quarter: 2024Q2

REPORT INFORMATION
  Report Type: Spontaneous
  Country: TH (occurrence: TH)
  Receive Date: 20240603
  Receipt Date: 20240603
  Transmission Date: 20240716
  Serious: Yes (Life-Threatening, Hospitalization)
  Sender: FDA-Public Use
  Company Number: TH-MLMSERVICE-20240516-PI064926-00101-1

PATIENT
  Age: 62 Year
  Sex: Female

DRUGS (3)
  1. CISPLATIN [Suspect]
     Active Substance: CISPLATIN
     Indication: Osteosarcoma
  2. DOXORUBICIN [Suspect]
     Active Substance: DOXORUBICIN
     Indication: Osteosarcoma
  3. DEXAMETHASONE [Suspect]
     Active Substance: DEXAMETHASONE
     Indication: Osteosarcoma
     Dosage: 4-DAY COURSE

REACTIONS (12)
  - Febrile neutropenia [Recovered/Resolved]
  - Enterocolitis [Recovered/Resolved]
  - Herpes simplex colitis [Recovered/Resolved]
  - Diarrhoea [Recovering/Resolving]
  - Coronavirus infection [Recovered/Resolved]
  - Herpes simplex pneumonia [Recovered/Resolved]
  - Nausea [Recovering/Resolving]
  - Lymphopenia [Recovering/Resolving]
  - Oral herpes [Recovered/Resolved]
  - Vomiting [Recovering/Resolving]
  - Disseminated herpes simplex [Recovered/Resolved]
  - Off label use [Unknown]
